FAERS Safety Report 9046222 (Version 3)
Quarter: 2013Q2

REPORT INFORMATION
  Report Type: Spontaneous
  Country: JP (occurrence: JP)
  Receive Date: 20130201
  Receipt Date: 20130401
  Transmission Date: 20140414
  Serious: Yes (Hospitalization)
  Sender: FDA-Public Use
  Company Number: PHHY2012JP120360

PATIENT
  Age: 9 Year
  Sex: Female
  Weight: 28 kg

DRUGS (3)
  1. TEGRETOL [Suspect]
     Indication: MIGRAINE
     Dosage: 200 MG, BID
     Route: 048
     Dates: start: 20120717, end: 20121222
  2. TEGRETOL [Suspect]
     Dosage: 200 MG, 8QD
     Route: 048
     Dates: start: 20121223, end: 20121223
  3. TEGRETOL [Suspect]
     Dosage: 200 MG, BID
     Route: 048
     Dates: start: 20121224

REACTIONS (9)
  - Aura [Recovered/Resolved]
  - Dysarthria [Recovered/Resolved]
  - Malaise [Recovering/Resolving]
  - Pyrexia [Recovered/Resolved]
  - Diplopia [Recovered/Resolved]
  - Dizziness [Recovered/Resolved]
  - Headache [Recovered/Resolved]
  - Overdose [Recovered/Resolved]
  - Inappropriate schedule of drug administration [Unknown]
